FAERS Safety Report 9119904 (Version 1)
Quarter: 2013Q1

REPORT INFORMATION
  Report Type: Spontaneous
  Country: US (occurrence: None)
  Receive Date: 20130221
  Receipt Date: 20130221
  Transmission Date: 20140127
  Serious: No
  Sender: FDA-Public Use
  Company Number: None

PATIENT
  Sex: 0

DRUGS (2)
  1. SODIUM CHLORIDE 0.9% [Suspect]
  2. STERILE WATER FOR INJECTION [Suspect]

REACTIONS (12)
  - Infusion site pain [None]
  - Chest discomfort [None]
  - Dizziness [None]
  - Syncope [None]
  - Blood pressure decreased [None]
  - Feeling abnormal [None]
  - Flank pain [None]
  - Headache [None]
  - Pyrexia [None]
  - Renal impairment [None]
  - Wrong drug administered [None]
  - Medication error [None]
